FAERS Safety Report 22218241 (Version 1)
Quarter: 2023Q2

REPORT INFORMATION
  Report Type: Report from Study
  Country: DE (occurrence: None)
  Receive Date: 20230417
  Receipt Date: 20230417
  Transmission Date: 20230721
  Serious: Yes (Other)
  Sender: FDA-Public Use
  Company Number: DE-Merck Healthcare KGaA-9395869

PATIENT
  Sex: Female

DRUGS (2)
  1. REBIF [Suspect]
     Active Substance: INTERFERON BETA-1A
     Indication: Multiple sclerosis
     Route: 064
  2. LEVOTHYROXINE [Concomitant]
     Active Substance: LEVOTHYROXINE
     Indication: Product used for unknown indication
     Dosage: SINCE THE AGE OF 18?112 (UNSPECIFIED UNIT)

REACTIONS (4)
  - Foetal malposition [Unknown]
  - Foetal macrosomia [Unknown]
  - Term baby [Unknown]
  - Foetal exposure during pregnancy [Unknown]
